FAERS Safety Report 10729646 (Version 3)
Quarter: 2015Q1

REPORT INFORMATION
  Report Type: Report from Study
  Country: US (occurrence: US)
  Receive Date: 20150122
  Receipt Date: 20150324
  Transmission Date: 20150721
  Serious: Yes (Death, Hospitalization, Other)
  Sender: FDA-Public Use
  Company Number: US-GILEAD-2015-0132798

PATIENT
  Age: 87 Year
  Sex: Female

DRUGS (2)
  1. REVATIO [Concomitant]
     Active Substance: SILDENAFIL CITRATE
  2. AMBRISENTAN [Suspect]
     Active Substance: AMBRISENTAN
     Indication: PRODUCT USED FOR UNKNOWN INDICATION
     Dosage: 10 MG, QD
     Route: 065
     Dates: start: 20101020

REACTIONS (8)
  - Hypertension [Unknown]
  - Musculoskeletal pain [Unknown]
  - Death [Fatal]
  - Pyrexia [Unknown]
  - Muscular weakness [Unknown]
  - Pain in extremity [Unknown]
  - Chills [Unknown]
  - Lung disorder [Unknown]

NARRATIVE: CASE EVENT DATE: 20150314
